FAERS Safety Report 8620298-3 (Version None)
Quarter: 2012Q3

REPORT INFORMATION
  Report Type: 
  Country: None (occurrence: None)
  Receive Date: 20120824
  Receipt Date: 20120815
  Transmission Date: 20120928
  Serious: No
  Sender: FDA-Public Use
  Company Number: US-B.I. PHARMACEUTICALS,INC./RIDGEFIELD-2012-BP-17654BP

PATIENT
  Sex: Female

DRUGS (5)
  1. TAPAZOLE [Concomitant]
     Indication: HYPERTHYROIDISM
  2. VENTOLIN [Concomitant]
     Indication: CHRONIC OBSTRUCTIVE PULMONARY DISEASE
  3. AMILOR-HCTZ [Concomitant]
     Indication: HYPERTENSION
  4. SPIRIVA [Suspect]
     Indication: CHRONIC OBSTRUCTIVE PULMONARY DISEASE
     Dosage: 18 MCG
     Route: 055
     Dates: start: 20120401
  5. SPIRIVA [Suspect]
     Route: 048
     Dates: start: 20120806, end: 20120806

REACTIONS (2)
  - PRODUCT QUALITY ISSUE [None]
  - INCORRECT ROUTE OF DRUG ADMINISTRATION [None]
